FAERS Safety Report 5460510-5 (Version None)
Quarter: 2007Q3

REPORT INFORMATION
  Report Type: 
  Country: None (occurrence: None)
  Receive Date: 20070919
  Receipt Date: 20070716
  Transmission Date: 20080115
  Serious: Yes (Other)
  Sender: FDA-Public Use
  Company Number: US-ASTRAZENECA-2007UW16815

PATIENT
  Age: 40 Year
  Sex: Female
  Weight: 63.6 kg

DRUGS (5)
  1. SEROQUEL [Suspect]
     Indication: AFFECTIVE DISORDER
     Route: 048
     Dates: start: 20020101, end: 20060101
  2. ZIPRASIDONE HCL [Concomitant]
     Route: 048
     Dates: start: 20070101
  3. HALDOL [Concomitant]
     Dates: start: 20070101
  4. TRAZODONE HCL [Concomitant]
     Route: 048
  5. CLONAZEPAM [Concomitant]
     Route: 048

REACTIONS (3)
  - DIABETES MELLITUS [None]
  - NEUROLEPTIC MALIGNANT SYNDROME [None]
  - PANCREATITIS [None]
